FAERS Safety Report 13103101 (Version 1)
Quarter: 2017Q1

REPORT INFORMATION
  Report Type: Report from Study
  Country: US (occurrence: US)
  Receive Date: 20170110
  Receipt Date: 20170110
  Transmission Date: 20170428
  Serious: Yes (Other)
  Sender: FDA-Public Use
  Company Number: US-SAOL THERAPEUTICS-2017SAO00031

PATIENT
  Sex: Female
  Weight: 59 kg

DRUGS (28)
  1. GILENYA [Concomitant]
     Active Substance: FINGOLIMOD HYDROCHLORIDE
     Dosage: 0.5 MG, EVERY 48 HOURS
     Route: 048
     Dates: start: 20150116, end: 20150612
  2. CHOLECALCIFEROL [Concomitant]
     Active Substance: CHOLECALCIFEROL
     Dosage: UNK
     Dates: start: 2011
  3. AMITRIPTYLINE [Concomitant]
     Active Substance: AMITRIPTYLINE
     Dosage: UNK
     Dates: start: 2003
  4. NORMAL SALINE [Concomitant]
     Active Substance: SODIUM CHLORIDE
  5. METHYLPREDNISOLONE. [Suspect]
     Active Substance: METHYLPREDNISOLONE
     Dosage: UNK
     Dates: start: 20150415, end: 20150420
  6. PROVIGIL [Concomitant]
     Active Substance: MODAFINIL
     Dosage: UNK
     Dates: start: 2004
  7. ZANTAC [Concomitant]
     Active Substance: RANITIDINE HYDROCHLORIDE
     Dosage: UNK
     Dates: start: 20150414, end: 20150420
  8. IBUPROFEN. [Concomitant]
     Active Substance: IBUPROFEN
     Dosage: UNK
     Dates: start: 20150323
  9. LEVAQUIN [Concomitant]
     Active Substance: LEVOFLOXACIN
     Dosage: UNK TABLETS, UNK
     Dates: start: 20150514, end: 20150521
  10. ANTICHOLINERGICS [Suspect]
     Active Substance: UNSPECIFIED INGREDIENT
  11. NATALIZUMAB [Suspect]
     Active Substance: NATALIZUMAB
  12. ANCEF [Concomitant]
     Active Substance: CEFAZOLIN SODIUM
  13. FLUOXETIN [Concomitant]
     Active Substance: FLUOXETINE HYDROCHLORIDE
     Dosage: UNK
     Dates: start: 2004
  14. MIRALAX [Concomitant]
     Active Substance: POLYETHYLENE GLYCOL 3350
     Dosage: UNK
     Dates: start: 2011
  15. WAL-ITIN [Concomitant]
     Active Substance: LORATADINE
     Dosage: UNK TABLETS, UNK
     Dates: start: 2011
  16. BACLOFEN. [Suspect]
     Active Substance: BACLOFEN
     Dosage: 20 MG, 3X/DAY
     Route: 048
  17. HYDROCHLOROTHIAZIDE. [Concomitant]
     Active Substance: HYDROCHLOROTHIAZIDE
     Dosage: UNK
     Dates: start: 2009
  18. CORTICOSTEROIDS [Suspect]
     Active Substance: CORTICOSTEROID NOS
     Dosage: UNK
     Route: 042
  19. GILENYA [Concomitant]
     Active Substance: FINGOLIMOD HYDROCHLORIDE
     Dosage: 0.5 MG, 1X/DAY
     Route: 048
     Dates: start: 20150617
  20. DIAZEPAM. [Concomitant]
     Active Substance: DIAZEPAM
  21. ROPINIROLE. [Concomitant]
     Active Substance: ROPINIROLE
     Dosage: UNK
     Dates: start: 2007
  22. CRANBERRY BERCO [Concomitant]
     Active Substance: CRANBERRY
     Dosage: UNK TABLETS, UNK
  23. BETASERON [Concomitant]
     Active Substance: INTERFERON BETA-1B
  24. BACLOFEN. [Suspect]
     Active Substance: BACLOFEN
     Indication: RELAPSING-REMITTING MULTIPLE SCLEROSIS
     Dosage: 1050 ?G, \DAY
     Route: 037
     Dates: start: 2011
  25. BACLOFEN. [Suspect]
     Active Substance: BACLOFEN
     Indication: MUSCLE SPASTICITY
     Dosage: 1000 ?G/ DAY
  26. GILENYA [Concomitant]
     Active Substance: FINGOLIMOD HYDROCHLORIDE
     Dosage: 0.5 MG, 1X/DAY
     Route: 048
     Dates: start: 20141203
  27. FERROUS SULFATE. [Concomitant]
     Active Substance: FERROUS SULFATE
     Dosage: UNK
     Dates: start: 2011
  28. FISH OIL [Concomitant]
     Active Substance: FISH OIL
     Dosage: UNK CAPSULES, UNK
     Dates: start: 2013

REACTIONS (53)
  - Monocyte percentage increased [Unknown]
  - Mole excision [Unknown]
  - Nasopharyngitis [Unknown]
  - Vision blurred [Unknown]
  - Discomfort [Unknown]
  - Fatigue [Unknown]
  - Pyrexia [Unknown]
  - White blood cell count decreased [Unknown]
  - Full blood count increased [Unknown]
  - Bacterial test positive [Unknown]
  - Urine analysis abnormal [Unknown]
  - Abdominal pain [Unknown]
  - Urine abnormality [Unknown]
  - Red blood cell count decreased [Unknown]
  - Urinary tract infection [Recovered/Resolved]
  - Lymphocyte count decreased [Unknown]
  - Nuclear magnetic resonance imaging abnormal [Unknown]
  - Eosinophil percentage increased [Unknown]
  - Multiple sclerosis relapse [Unknown]
  - Blood pressure decreased [Recovered/Resolved]
  - Depression [Unknown]
  - Dysarthria [Unknown]
  - Haemoglobin decreased [Unknown]
  - Pruritus [Unknown]
  - Asthenia [Unknown]
  - Wound [Unknown]
  - Prescribed underdose [Unknown]
  - Central nervous system lesion [Unknown]
  - Urinary incontinence [Recovered/Resolved]
  - Leukopenia [Recovered/Resolved]
  - Muscle spasticity [Recovered/Resolved]
  - Blood urine present [Unknown]
  - Urobilinogen urine increased [Unknown]
  - Carbon dioxide increased [Unknown]
  - Blood creatine phosphokinase increased [Recovered/Resolved]
  - Eructation [Unknown]
  - Drug withdrawal syndrome [Unknown]
  - Gait disturbance [Unknown]
  - Arthralgia [Unknown]
  - Muscle twitching [Recovered/Resolved]
  - Polymerase chain reaction positive [Unknown]
  - Hypersensitivity [Unknown]
  - Blood chloride decreased [Unknown]
  - Blood potassium decreased [Unknown]
  - Insomnia [Unknown]
  - Muscular weakness [Unknown]
  - Muscle spasms [Unknown]
  - Urine leukocyte esterase positive [Unknown]
  - Device malfunction [Unknown]
  - Skin ulcer [Unknown]
  - Demyelination [Unknown]
  - Lymphopenia [Recovered/Resolved]
  - Hypertonic bladder [Unknown]
